FAERS Safety Report 14436183 (Version 1)
Quarter: 2018Q1

REPORT INFORMATION
  Report Type: Spontaneous
  Country: US (occurrence: US)
  Receive Date: 20180124
  Receipt Date: 20180124
  Transmission Date: 20180509
  Serious: No
  Sender: FDA-Public Use
  Company Number: None

PATIENT
  Sex: Male
  Weight: 38.25 kg

DRUGS (1)
  1. METHYLPHENIDATE HCI EXTENDED RELEASE TABLETS [Suspect]
     Active Substance: METHYLPHENIDATE HYDROCHLORIDE
     Indication: ATTENTION DEFICIT/HYPERACTIVITY DISORDER
     Dates: start: 20171101, end: 20180104

REACTIONS (3)
  - Product substitution issue [None]
  - Therapeutic response shortened [None]
  - Feeling abnormal [None]

NARRATIVE: CASE EVENT DATE: 20171101
